FAERS Safety Report 25064695 (Version 1)
Quarter: 2025Q1

REPORT INFORMATION
  Report Type: Spontaneous
  Country: GB (occurrence: GB)
  Receive Date: 20250311
  Receipt Date: 20250311
  Transmission Date: 20250409
  Serious: Yes (Other)
  Sender: VIIV
  Company Number: GB-VIIV HEALTHCARE-GB2025EME027059

PATIENT

DRUGS (4)
  1. VOCABRIA [Suspect]
     Active Substance: CABOTEGRAVIR SODIUM
     Indication: Antiretroviral therapy
     Dates: start: 20240301
  2. VOCABRIA [Suspect]
     Active Substance: CABOTEGRAVIR SODIUM
  3. VOCABRIA [Suspect]
     Active Substance: CABOTEGRAVIR SODIUM
  4. RILPIVIRINE [Suspect]
     Active Substance: RILPIVIRINE
     Indication: Antiretroviral therapy
     Dates: start: 20240301

REACTIONS (6)
  - Neutropenia [Unknown]
  - Myelosuppression [Unknown]
  - Osteonecrosis [Recovered/Resolved]
  - Osteoarthritis [Recovered/Resolved]
  - Fear of injection [Unknown]
  - Arthralgia [Recovered/Resolved]
